FAERS Safety Report 9397957 (Version 1)
Quarter: 2013Q3

REPORT INFORMATION
  Report Type: Spontaneous
  Country: ES (occurrence: ES)
  Receive Date: 20130712
  Receipt Date: 20130712
  Transmission Date: 20140515
  Serious: Yes (Other)
  Sender: FDA-Public Use
  Company Number: PHHY2013ES071964

PATIENT
  Age: 90 Year
  Sex: Male

DRUGS (2)
  1. AMOXICILLIN SANDOZ [Suspect]
     Indication: ANTIBIOTIC THERAPY
     Dosage: 3 DF, PER DAY
     Route: 048
     Dates: start: 201211
  2. ARICEPT [Concomitant]
     Indication: DEMENTIA ALZHEIMER^S TYPE

REACTIONS (3)
  - Suffocation feeling [Recovered/Resolved]
  - Dermatitis allergic [Recovered/Resolved]
  - Skin swelling [Recovered/Resolved]
